FAERS Safety Report 8336848-0 (Version None)
Quarter: 2012Q2

REPORT INFORMATION
  Report Type: 
  Country: None (occurrence: None)
  Receive Date: 20120504
  Receipt Date: 20111107
  Transmission Date: 20120825
  Serious: Yes (Other)
  Sender: FDA-Public Use
  Company Number: IL-ELI_LILLY_AND_COMPANY-IL201205000506

PATIENT
  Age: 63 Year
  Sex: Female

DRUGS (3)
  1. ASPIRIN [Concomitant]
  2. EFFIENT [Suspect]
     Dosage: UNK, UNKNOWN
     Route: 048
  3. LIPITOR [Concomitant]

REACTIONS (3)
  - SEPSIS [None]
  - LIVER FUNCTION TEST ABNORMAL [None]
  - ANAEMIA [None]
